FAERS Safety Report 20165822 (Version 1)
Quarter: 2021Q4

REPORT INFORMATION
  Report Type: Report from Study
  Country: PK (occurrence: PK)
  Receive Date: 20211209
  Receipt Date: 20211209
  Transmission Date: 20220304
  Serious: Yes (Death)
  Sender: FDA-Public Use
  Company Number: PK-NOVARTISPH-NVSC2021PK282266

PATIENT
  Age: 40 Year
  Sex: Male
  Weight: 96 kg

DRUGS (1)
  1. TASIGNA [Suspect]
     Active Substance: NILOTINIB
     Indication: Chronic myeloid leukaemia
     Dosage: 800 MG (2+2 X BD)
     Route: 048
     Dates: start: 20200626

REACTIONS (1)
  - Death [Fatal]

NARRATIVE: CASE EVENT DATE: 20211116
